FAERS Safety Report 23227327 (Version 1)
Quarter: 2023Q4

REPORT INFORMATION
  Report Type: Spontaneous
  Country: CN (occurrence: CN)
  Receive Date: 20231124
  Receipt Date: 20231124
  Transmission Date: 20240110
  Serious: Yes (Other)
  Sender: FDA-Public Use
  Company Number: CN-PFIZER INC-PV202300189430

PATIENT
  Age: 10 Year
  Sex: Female
  Weight: 41 kg

DRUGS (3)
  1. CYTARABINE [Suspect]
     Active Substance: CYTARABINE
     Indication: Chemotherapy
     Dosage: 3.93 G, 2X/DAY
     Route: 041
     Dates: start: 20231022, end: 20231024
  2. CYTARABINE [Suspect]
     Active Substance: CYTARABINE
     Indication: Neoplasm
  3. ETOPOSIDE [Suspect]
     Active Substance: ETOPOSIDE
     Indication: Chemotherapy
     Dosage: UNK
     Route: 042
     Dates: start: 20231022, end: 20231024

REACTIONS (5)
  - Pyrexia [Recovered/Resolved]
  - C-reactive protein increased [Unknown]
  - Interleukin level increased [Unknown]
  - White blood cell count decreased [Unknown]
  - Neutrophil percentage increased [Unknown]

NARRATIVE: CASE EVENT DATE: 20231023
